FAERS Safety Report 5336298-5 (Version None)
Quarter: 2007Q2

REPORT INFORMATION
  Report Type: 
  Country: None (occurrence: None)
  Receive Date: 20070522
  Receipt Date: 20070515
  Transmission Date: 20071010
  Serious: Yes (Life-Threatening, Hospitalization)
  Sender: FDA-Public Use
  Company Number: 24979

PATIENT
  Age: 67 Year
  Sex: Female
  Weight: 72 kg

DRUGS (2)
  1. NIASPAN [Suspect]
  2. ASPIRIN [Suspect]
     Indication: FLUSHING

REACTIONS (6)
  - GASTROINTESTINAL HAEMORRHAGE [None]
  - GROIN PAIN [None]
  - HAEMOGLOBIN DECREASED [None]
  - PROCEDURAL PAIN [None]
  - PUNCTURE SITE REACTION [None]
  - URINARY TRACT INFECTION [None]
